FAERS Safety Report 16041208 (Version 1)
Quarter: 2019Q1

REPORT INFORMATION
  Report Type: Spontaneous
  Country: US (occurrence: US)
  Receive Date: 20190207
  Receipt Date: 20190207
  Transmission Date: 20190418
  Serious: No
  Sender: FDA-Public Use
  Company Number: None

PATIENT
  Age: 78 Year
  Sex: Female

DRUGS (1)
  1. EXJADE [Suspect]
     Active Substance: DEFERASIROX
     Dates: start: 201810

REACTIONS (3)
  - Abdominal discomfort [None]
  - Dizziness [None]
  - Decreased appetite [None]

NARRATIVE: CASE EVENT DATE: 20190207
